FAERS Safety Report 9060708 (Version 3)
Quarter: 2013Q1

REPORT INFORMATION
  Report Type: Spontaneous
  Country: CO (occurrence: CO)
  Receive Date: 20130204
  Receipt Date: 20130314
  Transmission Date: 20140127
  Serious: Yes (Hospitalization)
  Sender: FDA-Public Use
  Company Number: CO-ROCHE-1186705

PATIENT
  Age: 7 None
  Sex: Male

DRUGS (11)
  1. XOLAIR [Suspect]
     Indication: ASTHMA
     Route: 058
     Dates: start: 201111, end: 20121218
  2. XOLAIR [Suspect]
     Route: 048
     Dates: start: 20120510
  3. XOLAIR [Suspect]
     Route: 058
     Dates: start: 20121218, end: 201301
  4. XOLAIR [Suspect]
     Route: 048
     Dates: start: 20130301
  5. ALBUTEROL [Concomitant]
  6. PREDNISOLONE [Concomitant]
  7. MONTELUKAST [Concomitant]
  8. FLUTICASONE [Concomitant]
  9. SALMETEROL [Concomitant]
  10. SERETIDE [Concomitant]
  11. SALBUTAMOL [Concomitant]

REACTIONS (3)
  - Asthmatic crisis [Recovered/Resolved]
  - Treatment failure [Unknown]
  - Incorrect route of drug administration [Unknown]
